FAERS Safety Report 5101475-5 (Version None)
Quarter: 2006Q3

REPORT INFORMATION
  Report Type: 
  Country: None (occurrence: None)
  Receive Date: 20060906
  Receipt Date: 20060823
  Transmission Date: 20061208
  Serious: Yes (Other)
  Sender: FDA-Public Use
  Company Number: 000#8#2006-00344

PATIENT
  Age: 50 Year
  Sex: Male

DRUGS (1)
  1. GLYCERYL TRINITRATE, SOLUTION (GLYCERYL TRINITRATE) [Suspect]
     Indication: PRINZMETAL ANGINA
     Dosage: 400 MCG INTRACORONARY
     Route: 022

REACTIONS (1)
  - DRUG INEFFECTIVE [None]
